FAERS Safety Report 25259404 (Version 1)
Quarter: 2025Q2

REPORT INFORMATION
  Report Type: Report from Study
  Country: US (occurrence: US)
  Receive Date: 20250501
  Receipt Date: 20250501
  Transmission Date: 20250717
  Serious: Yes (Other)
  Sender: NOVARTIS
  Company Number: US-002147023-NVSC2024US238378

PATIENT
  Sex: Female

DRUGS (1)
  1. KISQALI [Suspect]
     Active Substance: RIBOCICLIB SUCCINATE
     Indication: Product used for unknown indication
     Route: 065

REACTIONS (14)
  - Liver injury [Unknown]
  - Anaemia [Unknown]
  - Hypersomnia [Unknown]
  - Nausea [Unknown]
  - Taste disorder [Unknown]
  - Constipation [Unknown]
  - Malaise [Unknown]
  - Alopecia [Unknown]
  - Trichorrhexis [Unknown]
  - Asthenia [Unknown]
  - Adverse drug reaction [Unknown]
  - Liver disorder [Unknown]
  - Liver function test abnormal [Unknown]
  - Sudden onset of sleep [Unknown]
